FAERS Safety Report 9796560 (Version 1)
Quarter: 2014Q1

REPORT INFORMATION
  Report Type: Spontaneous
  Country: US (occurrence: US)
  Receive Date: 20140103
  Receipt Date: 20140103
  Transmission Date: 20141002
  Serious: No
  Sender: FDA-Public Use
  Company Number: US-009507513-1312USA003243

PATIENT
  Age: 54 Year
  Sex: Female
  Weight: 49.43 kg

DRUGS (4)
  1. OXYTROL FOR WOMEN [Suspect]
     Indication: URGE INCONTINENCE
     Dosage: UNK UNK, UNKNOWN
     Route: 062
     Dates: start: 201310, end: 201311
  2. FLAXSEED [Concomitant]
     Indication: PRODUCT USED FOR UNKNOWN INDICATION
     Dosage: UNK, UNKNOWN
  3. CHOLECALCIFEROL [Concomitant]
     Indication: PRODUCT USED FOR UNKNOWN INDICATION
     Dosage: UNK, UNKNOWN
  4. ASCORBIC ACID [Concomitant]
     Indication: PRODUCT USED FOR UNKNOWN INDICATION
     Dosage: UNK, UNKNOWN

REACTIONS (1)
  - Rash pruritic [Recovered/Resolved]
